FAERS Safety Report 6674757-3 (Version None)
Quarter: 2010Q1

REPORT INFORMATION
  Report Type: 
  Country: None (occurrence: None)
  Receive Date: 20100331
  Receipt Date: 20090331
  Transmission Date: 20100710
  Serious: Yes (Hospitalization, Other)
  Sender: FDA-Public Use
  Company Number: 2009169794

PATIENT

DRUGS (3)
  1. CADUET [Suspect]
  2. NIASPAN [Suspect]
  3. GRAPEFRUIT JUICE (CITRUS PARADISI FRUIT JUICE) [Suspect]
     Dosage: 6 OZ

REACTIONS (1)
  - RHABDOMYOLYSIS [None]
